FAERS Safety Report 9559346 (Version 1)
Quarter: 2013Q3

REPORT INFORMATION
  Report Type: Spontaneous
  Country: US (occurrence: None)
  Receive Date: 20130913
  Receipt Date: 20130913
  Transmission Date: 20140515
  Serious: No
  Sender: FDA-Public Use
  Company Number: 1000044186

PATIENT
  Sex: Female

DRUGS (2)
  1. DALIRESP (ROFLUMILAST) [Suspect]
     Dates: start: 20130405
  2. PROAI (ALBUTEROL) [Concomitant]

REACTIONS (2)
  - Chromaturia [None]
  - Chest discomfort [None]
